FAERS Safety Report 9676039 (Version 1)
Quarter: 2013Q4

REPORT INFORMATION
  Report Type: Spontaneous
  Country: FR (occurrence: FR)
  Receive Date: 20131107
  Receipt Date: 20131107
  Transmission Date: 20140711
  Serious: Yes (Hospitalization)
  Sender: FDA-Public Use
  Company Number: FR-ABBVIE-13P-056-1164456-00

PATIENT
  Age: 70 Year
  Sex: Male

DRUGS (3)
  1. NORVIR [Suspect]
     Indication: HIV INFECTION
     Route: 048
     Dates: start: 20121219, end: 20130626
  2. REYATAZ [Suspect]
     Indication: HIV INFECTION
     Route: 048
     Dates: start: 20121219, end: 20130626
  3. KIVEXA [Concomitant]
     Indication: PRODUCT USED FOR UNKNOWN INDICATION

REACTIONS (3)
  - Nephrolithiasis [Not Recovered/Not Resolved]
  - Calculus ureteric [Unknown]
  - Proteus infection [Unknown]
